FAERS Safety Report 12762684 (Version 1)
Quarter: 2016Q3

REPORT INFORMATION
  Report Type: Spontaneous
  Country: JP (occurrence: JP)
  Receive Date: 20160920
  Receipt Date: 20160920
  Transmission Date: 20161109
  Serious: Yes (Life-Threatening, Hospitalization, Other)
  Sender: FDA-Public Use
  Company Number: JP-OTSUKA-02100-JPN-01-0123

PATIENT
  Age: 81 Year
  Sex: Male
  Weight: 50 kg

DRUGS (17)
  1. DIGOSIN [Concomitant]
     Active Substance: DIGOXIN
     Indication: CARDIAC FAILURE
     Dosage: 0.125 MG, QOD
     Route: 048
  2. LASIX [Concomitant]
     Active Substance: FUROSEMIDE
     Indication: ANGINA PECTORIS
     Dosage: 20 MG, QD
     Route: 048
  3. PLETAAL TABLETS 100MG [Suspect]
     Active Substance: CILOSTAZOL
     Indication: PERIPHERAL ARTERIAL OCCLUSIVE DISEASE
     Dosage: 100 MG, QD
     Route: 048
     Dates: start: 1996, end: 20011114
  4. SOLANAX [Concomitant]
     Active Substance: ALPRAZOLAM
     Indication: CARDIOVASCULAR SOMATIC SYMPTOM DISORDER
     Dosage: 0.4 MG, TID
     Route: 048
     Dates: start: 19960705
  5. ITOROL [Concomitant]
     Active Substance: ISOSORBIDE MONONITRATE
     Indication: ANGINA PECTORIS
     Dosage: 20 MG, TID
     Route: 048
  6. PLETAAL TABLETS 100MG [Suspect]
     Active Substance: CILOSTAZOL
     Indication: ANGINA PECTORIS
     Dosage: 100 MG, BID
     Route: 048
     Dates: start: 20011115, end: 20011211
  7. BAYMYCARD [Concomitant]
     Active Substance: NISOLDIPINE
     Indication: ANGINA PECTORIS
     Dosage: 15 MG, QD
     Route: 048
  8. OPALMON [Concomitant]
     Active Substance: LIMAPROST
     Indication: PERIPHERAL ARTERIAL OCCLUSIVE DISEASE
     Dosage: 5 UG, TID
     Route: 048
     Dates: start: 19941223
  9. SELBEX [Concomitant]
     Active Substance: TEPRENONE
     Indication: GASTRIC ULCER
     Dosage: 50 MG, TID
     Route: 048
     Dates: start: 19960705
  10. NITRODERM [Concomitant]
     Active Substance: NITROGLYCERIN
     Indication: ANGINA PECTORIS
     Dosage: UNK
     Route: 062
  11. NITROPEN [Concomitant]
     Active Substance: NITROGLYCERIN
     Indication: ANGINA PECTORIS
     Dosage: 0.3 MG, PRN
     Route: 048
     Dates: start: 19941223
  12. BAYASPIRIN [Concomitant]
     Active Substance: ASPIRIN
     Indication: ANGINA PECTORIS
     Dosage: 100 MG, QD
     Route: 048
  13. PURSENNID [Concomitant]
     Active Substance: SENNOSIDES A AND B
     Indication: CONSTIPATION
     Dosage: 48 MG, SINGLE
     Route: 048
  14. HALCION [Concomitant]
     Active Substance: TRIAZOLAM
     Indication: INSOMNIA
     Dosage: 0.25 MG, QD
     Route: 048
     Dates: start: 19960705
  15. ALOSITOL [Concomitant]
     Active Substance: ALLOPURINOL
     Indication: HYPERURICAEMIA
     Dosage: 100 MG, QD
     Route: 048
  16. SIGMART [Concomitant]
     Active Substance: NICORANDIL
     Indication: ANGINA PECTORIS
     Dosage: 5 MG, QID
     Route: 048
     Dates: start: 19941223
  17. UROCALUN [Concomitant]
     Active Substance: QUERCUS SALICINA STEM
     Indication: NEPHROLITHIASIS
     Dosage: 450 MG, TID
     Route: 048
     Dates: start: 19960419

REACTIONS (2)
  - Angina unstable [Unknown]
  - Ventricular tachycardia [Recovering/Resolving]

NARRATIVE: CASE EVENT DATE: 20011210
